FAERS Safety Report 15534973 (Version 1)
Quarter: 2018Q4

REPORT INFORMATION
  Report Type: Spontaneous
  Country: FR (occurrence: FR)
  Receive Date: 20181022
  Receipt Date: 20181022
  Transmission Date: 20190205
  Serious: Yes (Hospitalization)
  Sender: FDA-Public Use
  Company Number: FR-BEH-2018095804

PATIENT
  Sex: Female

DRUGS (1)
  1. HIZENTRA [Suspect]
     Active Substance: HUMAN IMMUNOGLOBULIN G
     Indication: IMMUNODEFICIENCY COMMON VARIABLE
     Dosage: 20 G, QW
     Route: 058
     Dates: start: 20170823, end: 20180820

REACTIONS (5)
  - Streptococcus test positive [Recovered/Resolved]
  - Injection site ulcer [Recovering/Resolving]
  - Infusion site necrosis [Recovering/Resolving]
  - Infusion site pain [Recovered/Resolved]
  - Infusion site haematoma [Recovered/Resolved]

NARRATIVE: CASE EVENT DATE: 20170824
